FAERS Safety Report 14068085 (Version 1)
Quarter: 2017Q4

REPORT INFORMATION
  Report Type: Spontaneous
  Country: US (occurrence: US)
  Receive Date: 20171009
  Receipt Date: 20171009
  Transmission Date: 20180321
  Serious: Yes (Other)
  Sender: FDA-Public Use
  Company Number: None

PATIENT
  Sex: Female
  Weight: 76.5 kg

DRUGS (3)
  1. TL-THYROXINE (SYNTHROID) [Concomitant]
  2. CETROZINE [Concomitant]
  3. CETIRIZINE HYDROCHLORIDE. [Suspect]
     Active Substance: CETIRIZINE HYDROCHLORIDE
     Indication: HYPERSENSITIVITY
     Dosage: ?          QUANTITY:1 TABLET(S);?
     Route: 048
     Dates: end: 20171004

REACTIONS (4)
  - Pruritus [None]
  - Headache [None]
  - Sneezing [None]
  - Rhinorrhoea [None]

NARRATIVE: CASE EVENT DATE: 20171007
